FAERS Safety Report 8063804-2 (Version None)
Quarter: 2011Q4

REPORT INFORMATION
  Report Type: 
  Country: None (occurrence: None)
  Receive Date: 20111221
  Receipt Date: 20111028
  Transmission Date: 20120403
  Serious: Yes (Hospitalization)
  Sender: FDA-Public Use
  Company Number: PHHY2011US54138

PATIENT
  Age: 38 Year
  Sex: Female

DRUGS (1)
  1. EXJADE [Suspect]
     Dosage: 500MG, QD, ORAL
     Route: 048
     Dates: start: 20110610

REACTIONS (4)
  - OEDEMA PERIPHERAL [None]
  - SKIN DISCOLOURATION [None]
  - SICKLE CELL ANAEMIA WITH CRISIS [None]
  - DECREASED APPETITE [None]
